FAERS Safety Report 4727651-9 (Version None)
Quarter: 2005Q3

REPORT INFORMATION
  Report Type: 
  Country: None (occurrence: None)
  Receive Date: 20050728
  Receipt Date: 20050728
  Transmission Date: 20060218
  Serious: Yes (Hospitalization, Other)
  Sender: FDA-Public Use
  Company Number: None

PATIENT
  Sex: Female
  Weight: 60 kg

DRUGS (4)
  1. CISPLATIN [Suspect]
     Indication: OESOPHAGEAL CARCINOMA
     Dosage: SEE IMAGE
     Dates: start: 20050418, end: 20050421
  2. CISPLATIN [Suspect]
     Indication: OESOPHAGEAL CARCINOMA
     Dosage: SEE IMAGE
     Dates: start: 20050502
  3. FLUOROURACIL [Suspect]
     Dosage: SEE IMAGE
     Dates: start: 20050418, end: 20050506
  4. RADIOTHERAPY [Suspect]
     Dosage: SEE IMAGE
     Dates: start: 20050502

REACTIONS (4)
  - DEHYDRATION [None]
  - NAUSEA [None]
  - OESOPHAGITIS [None]
  - VOMITING [None]
